FAERS Safety Report 9918841 (Version 2)
Quarter: 2014Q1

REPORT INFORMATION
  Report Type: Spontaneous
  Country: US (occurrence: US)
  Receive Date: 20140224
  Receipt Date: 20140224
  Transmission Date: 20141002
  Serious: Yes (Other)
  Sender: FDA-Public Use
  Company Number: US-AMGEN-USASP2013020729

PATIENT
  Age: 37 Year
  Sex: Female
  Weight: 65.76 kg

DRUGS (2)
  1. ENBREL [Suspect]
     Indication: PRODUCT USED FOR UNKNOWN INDICATION
     Dosage: 1 ML, QWK
     Dates: start: 1998
  2. FLUVACCINE [Concomitant]
     Dosage: UNK

REACTIONS (4)
  - Caesarean section [Recovered/Resolved]
  - Hepatobiliary scan [Unknown]
  - Asthma [Unknown]
  - Colonoscopy [Unknown]
